FAERS Safety Report 8279026-6 (Version None)
Quarter: 2012Q2

REPORT INFORMATION
  Report Type: 
  Country: None (occurrence: None)
  Receive Date: 20120412
  Receipt Date: 20110601
  Transmission Date: 20120825
  Serious: No
  Sender: FDA-Public Use
  Company Number: US-ASTRAZENECA-2011SE13334

PATIENT
  Age: 52 Year
  Sex: Female

DRUGS (3)
  1. NEXIUM [Suspect]
     Route: 048
  2. ACIPHEX [Concomitant]
  3. PROTONIX [Concomitant]

REACTIONS (3)
  - TINNITUS [None]
  - HEADACHE [None]
  - EAR DISCOMFORT [None]
